FAERS Safety Report 13332784 (Version 2)
Quarter: 2017Q2

REPORT INFORMATION
  Report Type: Spontaneous
  Country: US (occurrence: US)
  Receive Date: 20170314
  Receipt Date: 20170515
  Transmission Date: 20170830
  Serious: No
  Sender: FDA-Public Use
  Company Number: US-ASTRAZENECA-2017SE25369

PATIENT
  Sex: Male
  Weight: 68 kg

DRUGS (1)
  1. SYMBICORT [Suspect]
     Active Substance: BUDESONIDE\FORMOTEROL FUMARATE DIHYDRATE
     Dosage: 160/4.5MCG, ONE INHALATION TWO TIMES A DAY
     Route: 055

REACTIONS (8)
  - Medication error [Unknown]
  - Off label use [Unknown]
  - Hyperlipidaemia [Unknown]
  - Asthma-chronic obstructive pulmonary disease overlap syndrome [Unknown]
  - Device failure [Unknown]
  - Hypothyroidism [Unknown]
  - Hypertension [Unknown]
  - Product use issue [Unknown]
